FAERS Safety Report 10755747 (Version 3)
Quarter: 2015Q1

REPORT INFORMATION
  Report Type: Spontaneous
  Country: US (occurrence: US)
  Receive Date: 20150202
  Receipt Date: 20150217
  Transmission Date: 20150721
  Serious: Yes (Death)
  Sender: FDA-Public Use
  Company Number: US-JNJFOC-20150121142

PATIENT
  Age: 70 Year
  Sex: Male

DRUGS (3)
  1. AMICAR [Concomitant]
     Active Substance: AMINOCAPROIC ACID
     Route: 048
  2. ATIVAN [Concomitant]
     Active Substance: LORAZEPAM
  3. IMBRUVICA [Suspect]
     Active Substance: IBRUTINIB
     Indication: MANTLE CELL LYMPHOMA
     Route: 048
     Dates: start: 20140325, end: 201501

REACTIONS (13)
  - Renal disorder [Unknown]
  - Nausea [Unknown]
  - Prescribed overdose [Recovered/Resolved]
  - Dizziness [Unknown]
  - Arthralgia [Unknown]
  - Thrombocytopenia [Recovered/Resolved]
  - Sinusitis [Unknown]
  - White blood cell count decreased [Recovered/Resolved]
  - Decreased appetite [Unknown]
  - Stress [Unknown]
  - Weight decreased [Unknown]
  - Disease progression [Fatal]
  - Osteolysis [Unknown]

NARRATIVE: CASE EVENT DATE: 20140325
